FAERS Safety Report 5726765-4 (Version None)
Quarter: 2008Q2

REPORT INFORMATION
  Report Type: 
  Country: None (occurrence: None)
  Receive Date: 20080502
  Receipt Date: 20080423
  Transmission Date: 20081010
  Serious: Yes (Congenital Anomaly)
  Sender: FDA-Public Use
  Company Number: GB-ABBOTT-08P-167-0448884-00

PATIENT
  Age: 1 Day

DRUGS (1)
  1. VALPROATE SODIUM [Suspect]
     Indication: DRUG EXPOSURE DURING PREGNANCY
     Route: 064

REACTIONS (14)
  - ANOMALY OF EXTERNAL EAR CONGENITAL [None]
  - CONGENITAL NOSE MALFORMATION [None]
  - CONGENITAL ORAL MALFORMATION [None]
  - DERMATITIS ATOPIC [None]
  - DRUG EXPOSURE DURING PREGNANCY [None]
  - DYSMORPHISM [None]
  - FEELING JITTERY [None]
  - FOETAL ANTICONVULSANT SYNDROME [None]
  - GINGIVAL HYPERPLASIA [None]
  - HYPERREFLEXIA [None]
  - HYPERTELORISM OF ORBIT [None]
  - IRRITABILITY [None]
  - LOW SET EARS [None]
  - PREMATURE BABY [None]
